FAERS Safety Report 8393167-4 (Version None)
Quarter: 2012Q2

REPORT INFORMATION
  Report Type: 
  Country: None (occurrence: None)
  Receive Date: 20120529
  Receipt Date: 20120501
  Transmission Date: 20120825
  Serious: No
  Sender: FDA-Public Use
  Company Number: US-ABBOTT-12P-163-0931792-00

PATIENT
  Sex: Male
  Weight: 108.96 kg

DRUGS (3)
  1. VICTOZA [Concomitant]
     Indication: DIABETES MELLITUS
  2. ANDROGEL [Suspect]
     Indication: BLOOD TESTOSTERONE DECREASED
     Dosage: 2 PUMP ACTUATIONS ONCE DAILY.
     Dates: start: 20110101
  3. ANDROGEL [Suspect]
     Indication: BLOOD TESTOSTERONE DECREASED
     Dosage: 2 PUMP ACTUATIONS ONCE DAILY.
     Dates: start: 20090101, end: 20110101

REACTIONS (2)
  - DIZZINESS [None]
  - DYSPNOEA [None]
